FAERS Safety Report 17044037 (Version 1)
Quarter: 2019Q4

REPORT INFORMATION
  Report Type: Spontaneous
  Country: ES (occurrence: ES)
  Receive Date: 20191118
  Receipt Date: 20191118
  Transmission Date: 20200122
  Serious: Yes (Death, Hospitalization)
  Sender: FDA-Public Use
  Company Number: NVSC2019ES038759

PATIENT
  Age: 62 Year
  Sex: Male

DRUGS (1)
  1. GILENYA [Suspect]
     Active Substance: FINGOLIMOD HYDROCHLORIDE
     Indication: RELAPSING-REMITTING MULTIPLE SCLEROSIS
     Dosage: 1 DF, QD
     Route: 065
     Dates: start: 201906

REACTIONS (10)
  - Vomiting [Unknown]
  - Syncope [Fatal]
  - Shock [Fatal]
  - Apnoea [Fatal]
  - Sinus node dysfunction [Fatal]
  - Diarrhoea [Unknown]
  - Mydriasis [Unknown]
  - Hypotension [Fatal]
  - Cardiac tamponade [Fatal]
  - Pericardial effusion [Fatal]

NARRATIVE: CASE EVENT DATE: 20191110
